FAERS Safety Report 19592654 (Version 1)
Quarter: 2021Q3

REPORT INFORMATION
  Report Type: Spontaneous
  Country: US (occurrence: US)
  Receive Date: 20210722
  Receipt Date: 20210722
  Transmission Date: 20211014
  Serious: No
  Sender: FDA-Public Use
  Company Number: US-CIPLA LTD.-2021US03913

PATIENT

DRUGS (2)
  1. SALBUTAMOL [Suspect]
     Active Substance: ALBUTEROL
     Indication: DYSPNOEA
  2. SALBUTAMOL [Suspect]
     Active Substance: ALBUTEROL
     Indication: LUNG DISORDER
     Dosage: UNK
     Route: 065
     Dates: start: 20210519, end: 20210523

REACTIONS (6)
  - Product taste abnormal [Unknown]
  - Device issue [Unknown]
  - Taste disorder [Unknown]
  - Drug ineffective [Unknown]
  - Dyspnoea [Unknown]
  - Product quality issue [Unknown]

NARRATIVE: CASE EVENT DATE: 202105
